FAERS Safety Report 4845193-7 (Version None)
Quarter: 2005Q4

REPORT INFORMATION
  Report Type: 
  Country: None (occurrence: None)
  Receive Date: 20051205
  Receipt Date: 20051121
  Transmission Date: 20060501
  Serious: Yes (Hospitalization)
  Sender: FDA-Public Use
  Company Number: US-ROCHE-425874

PATIENT
  Age: 37 Year
  Sex: Male
  Weight: 73.9 kg

DRUGS (1)
  1. FUZEON [Suspect]
     Route: 058
     Dates: start: 20040709

REACTIONS (2)
  - CEREBRAL THROMBOSIS [None]
  - ISCHAEMIC CEREBRAL INFARCTION [None]
